FAERS Safety Report 4293224-8 (Version None)
Quarter: 2004Q1

REPORT INFORMATION
  Report Type: 
  Country: None (occurrence: None)
  Receive Date: 20040210
  Receipt Date: 20040126
  Transmission Date: 20041129
  Serious: Yes (Hospitalization, Disabling, Other)
  Sender: FDA-Public Use
  Company Number: M03-341-155

PATIENT
  Age: 57 Year
  Sex: Male

DRUGS (8)
  1. VELCADE [Suspect]
     Indication: MULTIPLE MYELOMA
     Dosage: 2.99 MG BIW : INTRAVENOUS
     Route: 042
     Dates: start: 20030619, end: 20030630
  2. HYDROMORPHONE HCL [Concomitant]
  3. NITROSTAT [Concomitant]
  4. POTASSIUM CHLORIDE [Concomitant]
  5. PROMETHAZINE [Concomitant]
  6. PROZAC [Concomitant]
  7. SIMVASTATIN [Concomitant]
  8. ZYRTEC [Concomitant]

REACTIONS (14)
  - AUTONOMIC NEUROPATHY [None]
  - DEHYDRATION [None]
  - HYPOCALCAEMIA [None]
  - HYPOKALAEMIA [None]
  - HYPOTENSION [None]
  - HYPOXIA [None]
  - NAUSEA [None]
  - NEUROGENIC BLADDER [None]
  - NEUROPATHY PERIPHERAL [None]
  - PLEURAL EFFUSION [None]
  - PNEUMONIA [None]
  - SYNCOPE [None]
  - URINARY INCONTINENCE [None]
  - VOMITING [None]
